FAERS Safety Report 5164984-9 (Version None)
Quarter: 2006Q4

REPORT INFORMATION
  Report Type: 
  Country: None (occurrence: None)
  Receive Date: 20061124
  Receipt Date: 20061117
  Transmission Date: 20070319
  Serious: Yes (Other)
  Sender: FDA-Public Use
  Company Number: 2006133064

PATIENT
  Sex: Female

DRUGS (8)
  1. LIPITOR [Suspect]
     Dosage: (10 MG), ORAL
     Route: 048
     Dates: start: 20000401, end: 20031101
  2. ALBYL-E (ACETYLSALICYLIC ACID, MAGNESIUM OXIDE) [Concomitant]
  3. METOPROLOL SUCCINATE [Concomitant]
  4. NORVASC [Concomitant]
  5. GLUCOPHAGE [Concomitant]
  6. OMEGA 3 (FISH OIL) [Concomitant]
  7. COZAAR [Concomitant]
  8. INSULATED (INSULIN HUMAN INJECTION, ISOPHANE) [Concomitant]

REACTIONS (2)
  - MUSCLE NECROSIS [None]
  - MYOSITIS [None]
